FAERS Safety Report 18988884 (Version 4)
Quarter: 2021Q2

REPORT INFORMATION
  Report Type: Spontaneous
  Country: IN (occurrence: US)
  Receive Date: 20210309
  Receipt Date: 20210427
  Transmission Date: 20210717
  Serious: Yes (Other)
  Sender: FDA-Public Use
  Company Number: US-ELI_LILLY_AND_COMPANY-US202102013070

PATIENT
  Age: 51 Year
  Sex: Female

DRUGS (1)
  1. TESTOSTERONE SOLUTION (LY900011) [Suspect]
     Active Substance: TESTOSTERONE
     Indication: HORMONE THERAPY
     Dosage: UNK UNK, UNKNOWN
     Route: 065

REACTIONS (3)
  - Apocrine breast carcinoma [Unknown]
  - Intraductal proliferative breast lesion [Unknown]
  - Off label use [Unknown]
